FAERS Safety Report 7166465-X (Version None)
Quarter: 2010Q4

REPORT INFORMATION
  Report Type: 
  Country: None (occurrence: None)
  Receive Date: 20101216
  Receipt Date: 20101206
  Transmission Date: 20110411
  Serious: Yes (Other)
  Sender: FDA-Public Use
  Company Number: PHHY2010DE84910

PATIENT
  Age: 46 Year
  Sex: Male

DRUGS (1)
  1. LAMISIL [Suspect]
     Indication: ONYCHOMYCOSIS
     Dosage: ONE TABLET PER DAY FOR 1 WEEK, THEN 1 TABLET PER WEEK FOR 3 MONTHS
     Route: 048
     Dates: start: 20100101

REACTIONS (4)
  - ABDOMINAL DISTENSION [None]
  - ARTHRALGIA [None]
  - PAIN [None]
  - SLEEP DISORDER [None]
